FAERS Safety Report 8091111-0 (Version None)
Quarter: 2012Q1

REPORT INFORMATION
  Report Type: 
  Country: None (occurrence: None)
  Receive Date: 20120129
  Receipt Date: 20110920
  Transmission Date: 20120608
  Serious: No
  Sender: FDA-Public Use
  Company Number: US-ABBOTT-11P-163-0856429-00

PATIENT
  Sex: Female
  Weight: 90.8 kg

DRUGS (3)
  1. SOMA [Concomitant]
     Indication: MUSCLE DISORDER
  2. TRAMADOL HCL [Concomitant]
     Indication: PAIN
  3. HUMIRA [Suspect]
     Indication: PSORIATIC ARTHROPATHY
     Dates: start: 20050901

REACTIONS (4)
  - PYREXIA [None]
  - NASOPHARYNGITIS [None]
  - URINARY INCONTINENCE [None]
  - ABDOMINAL PAIN UPPER [None]
